FAERS Safety Report 9709349 (Version 1)
Quarter: 2013Q4

REPORT INFORMATION
  Report Type: Report from Study
  Country: US (occurrence: US)
  Receive Date: 20131125
  Receipt Date: 20131125
  Transmission Date: 20140711
  Serious: Yes (Other)
  Sender: FDA-Public Use
  Company Number: US-ROCHE-1305443

PATIENT
  Sex: Male
  Weight: 50.5 kg

DRUGS (3)
  1. NUTROPIN [Suspect]
     Indication: BODY HEIGHT BELOW NORMAL
     Route: 058
  2. SYNTHROID [Concomitant]
     Route: 048
  3. VITAMIN D [Concomitant]
     Dosage: 1000 UNITS
     Route: 048

REACTIONS (2)
  - Growth retardation [Unknown]
  - Gynaecomastia [Unknown]
